FAERS Safety Report 4661483-5 (Version None)
Quarter: 2005Q2

REPORT INFORMATION
  Report Type: 
  Country: None (occurrence: None)
  Receive Date: 20050513
  Receipt Date: 20050502
  Transmission Date: 20051028
  Serious: Yes (Death, Hospitalization)
  Sender: FDA-Public Use
  Company Number: FR-JNJFOC-20050500992

PATIENT
  Sex: Female
  Weight: 38 kg

DRUGS (1)
  1. INFLIXIMAB [Suspect]
     Indication: RHEUMATOID ARTHRITIS
     Route: 042

REACTIONS (6)
  - ANGINA PECTORIS [None]
  - CLOSTRIDIUM COLITIS [None]
  - LUNG DISORDER [None]
  - RECTAL HAEMORRHAGE [None]
  - SHOCK [None]
  - SIGMOIDITIS [None]
